FAERS Safety Report 11402162 (Version 1)
Quarter: 2015Q3

REPORT INFORMATION
  Report Type: Spontaneous
  Country: US (occurrence: None)
  Receive Date: 20150807
  Receipt Date: 20150807
  Transmission Date: 20151125
  Serious: Yes (Other)
  Sender: FDA-Public Use
  Company Number: 2015-LIT-ME-0030

PATIENT

DRUGS (4)
  1. METHOTREXATE (METHOTREXATE) N/A [Suspect]
     Active Substance: METHOTREXATE
     Indication: LYMPHOMA
     Dosage: 3.5 G/M2
  2. RITUXIMAB (RITUXIMAB) [Concomitant]
     Active Substance: RITUXIMAB
  3. VINCRISTINE [Concomitant]
     Active Substance: VINCRISTINE
  4. PROCARBAZINE (PROCARBAZINE HYDROCHLORIDE) [Concomitant]

REACTIONS (1)
  - Thrombosis [None]
